FAERS Safety Report 16535356 (Version 1)
Quarter: 2019Q3

REPORT INFORMATION
  Report Type: Spontaneous
  Country: IT (occurrence: IT)
  Receive Date: 20190705
  Receipt Date: 20190705
  Transmission Date: 20191004
  Serious: Yes (Life-Threatening)
  Sender: FDA-Public Use
  Company Number: IT-TEVA-2019-IT-1073359

PATIENT
  Age: 44 Year
  Sex: Female
  Weight: 78 kg

DRUGS (1)
  1. IBUPROFEN. [Suspect]
     Active Substance: IBUPROFEN
     Indication: TENSION HEADACHE
     Dosage: 600 MILLIGRAM
     Route: 048

REACTIONS (2)
  - Urticaria [Recovered/Resolved with Sequelae]
  - Anaphylactoid reaction [Recovered/Resolved with Sequelae]

NARRATIVE: CASE EVENT DATE: 20190613
